FAERS Safety Report 14033951 (Version 1)
Quarter: 2017Q4

REPORT INFORMATION
  Report Type: Spontaneous
  Country: US (occurrence: US)
  Receive Date: 20171003
  Receipt Date: 20171003
  Transmission Date: 20180321
  Serious: No
  Sender: FDA-Public Use
  Company Number: US-ROCHE-1004359

PATIENT
  Sex: Male

DRUGS (2)
  1. RITUXAN [Suspect]
     Active Substance: RITUXIMAB
     Indication: NON-HODGKIN^S LYMPHOMA
     Dosage: RITUXIMAB IN CHOP
     Route: 042
  2. RITUXAN [Suspect]
     Active Substance: RITUXIMAB
     Dosage: RITUXIMAB IN MAINTENANCE
     Route: 042

REACTIONS (1)
  - Personality change [Not Recovered/Not Resolved]
